FAERS Safety Report 8397442-9 (Version None)
Quarter: 2012Q2

REPORT INFORMATION
  Report Type: 
  Country: None (occurrence: None)
  Receive Date: 20120529
  Receipt Date: 20120529
  Transmission Date: 20120825
  Serious: Yes (Other)
  Sender: FDA-Public Use
  Company Number: None

PATIENT
  Age: 37 Year
  Sex: Female
  Weight: 120.2032 kg

DRUGS (1)
  1. CYMBALTA [Suspect]
     Indication: DEPRESSION
     Dosage: 30 MG DAILY PO
     Route: 048
     Dates: start: 20060315, end: 20120526

REACTIONS (9)
  - DRUG WITHDRAWAL SYNDROME [None]
  - FRUSTRATION [None]
  - DIZZINESS [None]
  - VOMITING [None]
  - NAUSEA [None]
  - ACTIVITIES OF DAILY LIVING IMPAIRED [None]
  - FEELING ABNORMAL [None]
  - DRUG DOSE OMISSION [None]
  - APHAGIA [None]
